FAERS Safety Report 21738376 (Version 1)
Quarter: 2022Q4

REPORT INFORMATION
  Report Type: Spontaneous
  Country: US (occurrence: US)
  Receive Date: 20221216
  Receipt Date: 20221216
  Transmission Date: 20230113
  Serious: No
  Sender: FDA-Public Use
  Company Number: US-AUROBINDO-AUR-APL-2022-042594

PATIENT
  Sex: Female

DRUGS (4)
  1. BUPIVACAINE HYDROCHLORIDE [Suspect]
     Active Substance: BUPIVACAINE HYDROCHLORIDE
     Indication: Myofascial pain syndrome
     Dosage: 5 CC, INTRAMUSCULAR TO THE NECK MUSCLES
     Route: 030
     Dates: start: 20220729
  2. BUPIVACAINE HYDROCHLORIDE [Suspect]
     Active Substance: BUPIVACAINE HYDROCHLORIDE
     Indication: Muscle spasms
  3. XYLOCAINE [Concomitant]
     Active Substance: LIDOCAINE HYDROCHLORIDE
     Indication: Myofascial pain syndrome
     Dosage: 5 CC, ONCE A DAY
     Route: 030
     Dates: start: 20220729
  4. XYLOCAINE [Concomitant]
     Active Substance: LIDOCAINE HYDROCHLORIDE
     Indication: Muscle spasms

REACTIONS (4)
  - Eye swelling [Recovered/Resolved]
  - Erythema [Recovered/Resolved]
  - Lip erythema [Recovered/Resolved]
  - Dyspnoea [Recovered/Resolved]

NARRATIVE: CASE EVENT DATE: 20220729
